FAERS Safety Report 4424527-1 (Version None)
Quarter: 2004Q3

REPORT INFORMATION
  Report Type: 
  Country: None (occurrence: None)
  Receive Date: 20040812
  Receipt Date: 20040805
  Transmission Date: 20050211
  Serious: Yes (Hospitalization)
  Sender: FDA-Public Use
  Company Number: IE-ROCHE-376782

PATIENT
  Age: 67 Year
  Sex: Male
  Weight: 83.9 kg

DRUGS (6)
  1. CAPECITABINE [Suspect]
     Dosage: INTERMITTENT TREATMENT:  TWO WEEKS OF THERAPY FOLLOWED BY ONE WEEK REST.
     Route: 048
     Dates: start: 20040713
  2. OXALIPLATIN [Suspect]
     Route: 042
     Dates: start: 20040713
  3. VITAMIN E [Concomitant]
     Dates: start: 20040615
  4. FERROGRAD [Concomitant]
     Dates: start: 20040615
  5. ULCID [Concomitant]
     Dates: start: 20040615
  6. ZIMOVANE [Concomitant]
     Dosage: TDD REPORTED AS ^7.5^ (NO UNITS GIVEN)
     Dates: start: 20040615

REACTIONS (1)
  - LARYNGOSPASM [None]
